FAERS Safety Report 7737416-1 (Version None)
Quarter: 2011Q3

REPORT INFORMATION
  Report Type: 
  Country: None (occurrence: None)
  Receive Date: 20110908
  Receipt Date: 20110824
  Transmission Date: 20111222
  Serious: Yes (Hospitalization)
  Sender: FDA-Public Use
  Company Number: US-GLAXOSMITHKLINE-A0755106A

PATIENT
  Age: 58 Year
  Sex: Female
  Weight: 56.8 kg

DRUGS (3)
  1. AVANDIA [Suspect]
     Indication: TYPE 2 DIABETES MELLITUS
     Dosage: 4MG PER DAY
     Route: 048
     Dates: start: 20040101, end: 20070601
  2. COREG [Concomitant]
  3. LIPITOR [Concomitant]

REACTIONS (8)
  - ANXIETY [None]
  - CHEST PAIN [None]
  - DEPRESSION [None]
  - VISION BLURRED [None]
  - MYOCARDIAL INFARCTION [None]
  - DIZZINESS [None]
  - MYOCARDIAL ISCHAEMIA [None]
  - HEADACHE [None]
